FAERS Safety Report 7521836-4 (Version None)
Quarter: 2011Q2

REPORT INFORMATION
  Report Type: 
  Country: None (occurrence: None)
  Receive Date: 20110524
  Receipt Date: 20110518
  Transmission Date: 20111010
  Serious: Yes (Other)
  Sender: FDA-Public Use
  Company Number: 2011SP022938

PATIENT
  Sex: Female

DRUGS (4)
  1. METFORMIN HCL [Concomitant]
  2. SAPHRIS [Suspect]
     Indication: MAJOR DEPRESSION
     Dosage: 5 MG;BID;SL
     Route: 060
     Dates: start: 20110509, end: 20110517
  3. SAPHRIS [Suspect]
     Indication: PSYCHOTIC BEHAVIOUR
     Dosage: 5 MG;BID;SL
     Route: 060
     Dates: start: 20110509, end: 20110517
  4. SAPHRIS [Suspect]
     Indication: BIPOLAR DISORDER
     Dosage: 5 MG;BID;SL
     Route: 060
     Dates: start: 20110509, end: 20110517

REACTIONS (3)
  - POLLAKIURIA [None]
  - BLOOD GLUCOSE INCREASED [None]
  - SEDATION [None]
